FAERS Safety Report 14356467 (Version 3)
Quarter: 2018Q3

REPORT INFORMATION
  Report Type: Report from Study
  Country: US (occurrence: US)
  Receive Date: 20180105
  Receipt Date: 20180705
  Transmission Date: 20181010
  Serious: Yes (Hospitalization)
  Sender: FDA-Public Use
  Company Number: US-ACTELION-A-US2018-165277

PATIENT
  Age: 15 Year
  Sex: Male

DRUGS (9)
  1. ZAVESCA [Suspect]
     Active Substance: MIGLUSTAT
     Indication: LIPIDOSIS
     Dosage: 200 MG, BID
     Route: 048
     Dates: start: 20120517
  2. TRIHEXYPHENIDYL [Concomitant]
     Active Substance: TRIHEXYPHENIDYL
     Dosage: 1.5 TAB, TID
     Route: 050
     Dates: start: 20170523
  3. IBUPROFEN. [Concomitant]
     Active Substance: IBUPROFEN
     Dosage: 100 ML, BID
     Route: 050
     Dates: start: 20170523
  4. TYLENOL [Concomitant]
     Active Substance: ACETAMINOPHEN
     Dosage: 1 TAB, BID
     Route: 050
     Dates: start: 20170523
  5. BACLOFEN. [Concomitant]
     Active Substance: BACLOFEN
     Dosage: 1 TAB, TID
     Route: 050
     Dates: start: 20170523
  6. COBALT [Concomitant]
     Active Substance: COBALT
     Dosage: 2 ML, UNK
     Dates: start: 20170523
  7. MULTIVITAMINS [Concomitant]
     Active Substance: VITAMINS
     Dosage: 1 TAB, QD
     Route: 050
     Dates: start: 20170523
  8. PROVIGIL [Concomitant]
     Active Substance: MODAFINIL
     Dosage: 1 TAB
     Dates: start: 20160512
  9. OXCARBAZEPINE. [Concomitant]
     Active Substance: OXCARBAZEPINE
     Dosage: 14 ML, TID
     Route: 050
     Dates: start: 20170523

REACTIONS (2)
  - Pneumonia [Unknown]
  - Ear infection [Unknown]

NARRATIVE: CASE EVENT DATE: 20171115
